FAERS Safety Report 10042310 (Version 1)
Quarter: 2014Q1

REPORT INFORMATION
  Report Type: Report from Study
  Country: US (occurrence: US)
  Receive Date: 20140327
  Receipt Date: 20140327
  Transmission Date: 20141002
  Serious: Yes (Hospitalization)
  Sender: FDA-Public Use
  Company Number: US-VERTEX PHARMACEUTICALS INC-2014-001600

PATIENT
  Age: 60 Year
  Sex: Female

DRUGS (11)
  1. VX-950 (TELAPREVIR) [Suspect]
     Indication: CHRONIC HEPATITIS C
     Dosage: UNK
     Route: 065
  2. Z-RIBAVIRIN [Suspect]
     Indication: CHRONIC HEPATITIS C
     Dosage: 1200 MG, UNK
     Route: 048
     Dates: start: 20120816, end: 20121130
  3. PEGINTERFERON LAMBDA-1A [Suspect]
     Indication: CHRONIC HEPATITIS C
     Dosage: 180 ?G, QW
     Route: 058
     Dates: start: 20120816
  4. AMITRIPTYLINE [Concomitant]
     Dates: start: 2002
  5. TRIAMTERENE AND HCTZ [Concomitant]
     Dates: start: 2006
  6. LISINOPRIL [Concomitant]
     Dates: start: 2006
  7. HYDROCORTISONE CREAM [Concomitant]
     Dates: start: 20120927
  8. LANSOPRAZOLE [Concomitant]
     Dates: start: 20120928
  9. EFFEXOR [Concomitant]
     Dates: start: 20121114
  10. REGLAN [Concomitant]
     Dates: start: 20121122
  11. BENADRYL [Concomitant]
     Dosage: DOSAGE FORM: UNSPECIFIED
     Dates: start: 20120927

REACTIONS (1)
  - Peptic ulcer haemorrhage [Recovered/Resolved]
